FAERS Safety Report 20517918 (Version 1)
Quarter: 2022Q1

REPORT INFORMATION
  Report Type: Spontaneous
  Country: TW (occurrence: None)
  Receive Date: 20220225
  Receipt Date: 20220225
  Transmission Date: 20220423
  Serious: Yes (Hospitalization, Other)
  Sender: FDA-Public Use
  Company Number: 2022A079827

PATIENT
  Age: 58 Year
  Sex: Female

DRUGS (6)
  1. IRESSA [Suspect]
     Active Substance: GEFITINIB
     Route: 048
     Dates: start: 20211202
  2. DACOMITINIB [Suspect]
     Active Substance: DACOMITINIB
     Route: 065
     Dates: start: 20211012
  3. DACOMITINIB [Suspect]
     Active Substance: DACOMITINIB
     Route: 065
     Dates: start: 20211019
  4. DACOMITINIB [Suspect]
     Active Substance: DACOMITINIB
     Route: 065
     Dates: start: 20211103, end: 20211201
  5. DACOMITINIB [Suspect]
     Active Substance: DACOMITINIB
     Route: 065
     Dates: start: 20211201
  6. CYRAMZA [Suspect]
     Active Substance: RAMUCIRUMAB
     Dosage: 500.0MG UNKNOWN
     Route: 065
     Dates: start: 20211118, end: 20220117

REACTIONS (5)
  - Cachexia [Unknown]
  - Rash [Unknown]
  - Hepatic function abnormal [Unknown]
  - Diarrhoea [Unknown]
  - Off label use [Unknown]
